FAERS Safety Report 25221001 (Version 1)
Quarter: 2025Q2

REPORT INFORMATION
  Report Type: Spontaneous
  Country: US (occurrence: None)
  Receive Date: 20250419
  Receipt Date: 20250419
  Transmission Date: 20250717
  Serious: No
  Sender: FDA-CTU
  Company Number: None

PATIENT
  Age: 76 Year
  Sex: Male
  Weight: 77.4 kg

DRUGS (11)
  1. TRULICITY [Suspect]
     Active Substance: DULAGLUTIDE
     Indication: Diabetes mellitus
     Route: 050
     Dates: start: 20250331
  2. PRIMIDONE [Concomitant]
     Active Substance: PRIMIDONE
  3. RYBELSUS, [Concomitant]
  4. LOSARTAN, [Concomitant]
  5. ROSUVASTATIN, [Concomitant]
  6. CLONAZEPAM [Concomitant]
     Active Substance: CLONAZEPAM
  7. METFORMIN [Concomitant]
     Active Substance: METFORMIN HYDROCHLORIDE
  8. MONTELUKAST [Concomitant]
     Active Substance: MONTELUKAST
  9. LEVOTHYROXINE, [Concomitant]
  10. TAMSULOSIN [Concomitant]
     Active Substance: TAMSULOSIN
  11. PRIMIDONE [Concomitant]
     Active Substance: PRIMIDONE

REACTIONS (3)
  - Insomnia [None]
  - Hypertension [None]
  - Visual impairment [None]
